FAERS Safety Report 5288475-X (Version None)
Quarter: 2007Q2

REPORT INFORMATION
  Report Type: 
  Country: None (occurrence: None)
  Receive Date: 20070405
  Receipt Date: 20070330
  Transmission Date: 20071010
  Serious: No
  Sender: FDA-Public Use
  Company Number: 2006UW10992

PATIENT
  Sex: Female
  Weight: 136.4 kg

DRUGS (4)
  1. SEROQUEL [Suspect]
     Indication: BIPOLAR DISORDER
     Dosage: 50 MG, 200 MG
     Route: 048
     Dates: start: 20050501
  2. SEROQUEL [Suspect]
     Indication: ARTHRITIS
     Dosage: 50 MG, 200 MG
     Route: 048
     Dates: start: 20050501
  3. ZYPREXA [Suspect]
     Dates: start: 20021001, end: 20050101
  4. ZYPREXA [Concomitant]
     Dates: start: 20021001, end: 20050101

REACTIONS (1)
  - DIABETES MELLITUS [None]
